FAERS Safety Report 21458173 (Version 1)
Quarter: 2022Q4

REPORT INFORMATION
  Report Type: Spontaneous
  Country: NL (occurrence: NL)
  Receive Date: 20221014
  Receipt Date: 20221014
  Transmission Date: 20230112
  Serious: Yes (Life-Threatening, Hospitalization)
  Sender: FDA-Public Use
  Company Number: None

PATIENT
  Sex: Male

DRUGS (3)
  1. ACETAMINOPHEN [Suspect]
     Active Substance: ACETAMINOPHEN
     Indication: Pain
     Dosage: TABLET, 500 MG (MILLIGRAM),
     Route: 065
     Dates: start: 19600101, end: 20220208
  2. ACETAMINOPHEN [Suspect]
     Active Substance: ACETAMINOPHEN
     Indication: Malaise
  3. PREDNISONE [Concomitant]
     Active Substance: PREDNISONE
     Dosage: TABLET, 20 MG (MILLIGRAM)

REACTIONS (5)
  - Loss of consciousness [Recovered/Resolved]
  - Chills [Recovered/Resolved]
  - Anaphylactic shock [Recovered/Resolved]
  - Dyspnoea [Recovered/Resolved]
  - Feeling of body temperature change [Recovered/Resolved]
